FAERS Safety Report 11540775 (Version 3)
Quarter: 2015Q4

REPORT INFORMATION
  Report Type: Spontaneous
  Country: IT (occurrence: IT)
  Receive Date: 20150923
  Receipt Date: 20151130
  Transmission Date: 20160304
  Serious: Yes (Death, Hospitalization, Other)
  Sender: FDA-Public Use
  Company Number: IT-GLAXOSMITHKLINE-IT2015GSK134818

PATIENT
  Age: 25 Year
  Sex: Female
  Weight: 51 kg

DRUGS (25)
  1. REVOLADE [Suspect]
     Active Substance: ELTROMBOPAG
     Dosage: 50 MG, 1D
     Route: 048
     Dates: start: 20150223, end: 20150308
  2. ENTACT [Concomitant]
     Active Substance: ESCITALOPRAM OXALATE
     Indication: PRODUCT USED FOR UNKNOWN INDICATION
     Dosage: 3 UNK, UNK
     Route: 048
     Dates: start: 20150731
  3. REVOLADE [Suspect]
     Active Substance: ELTROMBOPAG
     Dosage: 75 MG, 1D
     Route: 048
     Dates: start: 20141112, end: 20150222
  4. CALCIUM [Concomitant]
     Active Substance: CALCIUM
     Indication: PRODUCT USED FOR UNKNOWN INDICATION
     Dosage: 3 G, UNK
     Route: 048
     Dates: start: 20150803
  5. REVOLADE [Suspect]
     Active Substance: ELTROMBOPAG
     Dosage: 25 MG, 1D
     Route: 048
     Dates: start: 20150309, end: 20150412
  6. REVOLADE [Suspect]
     Active Substance: ELTROMBOPAG
     Dosage: 25 MG, 1D
     Route: 048
     Dates: start: 20150729, end: 20150803
  7. DESFERAL [Concomitant]
     Active Substance: DEFEROXAMINE MESYLATE
     Indication: PRODUCT USED FOR UNKNOWN INDICATION
     Dosage: 1000 MG, UNK
     Route: 058
     Dates: start: 20150803
  8. ROCALTROL [Concomitant]
     Active Substance: CALCITRIOL
     Indication: PRODUCT USED FOR UNKNOWN INDICATION
     Dosage: 0.25 UNK, UNK
     Route: 048
     Dates: start: 20150804
  9. TARGOSID [Concomitant]
     Active Substance: TEICOPLANIN
     Indication: PRODUCT USED FOR UNKNOWN INDICATION
     Route: 065
     Dates: start: 201411, end: 201411
  10. MERCILON [Suspect]
     Active Substance: DESOGESTREL\ETHINYL ESTRADIOL
     Indication: ANAEMIA
     Dosage: 1 UNK, CYC
     Route: 048
     Dates: start: 20130121, end: 20150804
  11. CATAPRESAN [Concomitant]
     Active Substance: CLONIDINE
     Indication: PRODUCT USED FOR UNKNOWN INDICATION
     Dosage: 150 UNK, UNK
     Route: 048
     Dates: start: 20150803
  12. IMIPENEM [Concomitant]
     Active Substance: IMIPENEM
     Indication: PRODUCT USED FOR UNKNOWN INDICATION
     Route: 065
     Dates: start: 201411, end: 201411
  13. TEICOPLANIN [Concomitant]
     Active Substance: TEICOPLANIN
     Indication: PRODUCT USED FOR UNKNOWN INDICATION
     Route: 065
     Dates: start: 201502, end: 201502
  14. CEFTAZIDIME. [Concomitant]
     Active Substance: CEFTAZIDIME
     Indication: PRODUCT USED FOR UNKNOWN INDICATION
     Route: 065
     Dates: start: 201502, end: 201502
  15. LEVOFLOXACINA [Concomitant]
     Active Substance: LEVOFLOXACIN
     Indication: PRODUCT USED FOR UNKNOWN INDICATION
     Route: 065
     Dates: start: 201502, end: 201502
  16. REVOLADE [Suspect]
     Active Substance: ELTROMBOPAG
     Indication: APLASIA PURE RED CELL
     Dosage: 50 MG, 1D
     Route: 048
     Dates: start: 20141029, end: 20141111
  17. REVOLADE [Suspect]
     Active Substance: ELTROMBOPAG
     Dosage: 50 MG, 1D
     Route: 048
     Dates: start: 20150413, end: 20150728
  18. PANTOPRAZOLE [Concomitant]
     Active Substance: PANTOPRAZOLE SODIUM
     Indication: PRODUCT USED FOR UNKNOWN INDICATION
     Dosage: 40 MG, UNK
     Route: 048
     Dates: start: 20150731
  19. FOLINA [Concomitant]
     Active Substance: FOLIC ACID
     Indication: PRODUCT USED FOR UNKNOWN INDICATION
     Dosage: 5 MG, UNK
     Route: 048
     Dates: start: 20150730
  20. CUBICIN [Concomitant]
     Active Substance: DAPTOMYCIN
     Indication: PRODUCT USED FOR UNKNOWN INDICATION
     Route: 065
     Dates: start: 201411, end: 201411
  21. MERCILON [Suspect]
     Active Substance: DESOGESTREL\ETHINYL ESTRADIOL
     Dosage: 1 DF, UNK
     Dates: start: 20150804
  22. XANAX [Concomitant]
     Active Substance: ALPRAZOLAM
     Indication: PRODUCT USED FOR UNKNOWN INDICATION
     Dosage: 1 MG, UNK
     Route: 048
     Dates: start: 20150802
  23. DELTACORTENE [Concomitant]
     Active Substance: PREDNISONE
     Indication: PRODUCT USED FOR UNKNOWN INDICATION
     Dosage: 10 MG, UNK
     Route: 048
     Dates: start: 20150802
  24. DIDROGYL [Concomitant]
     Indication: PRODUCT USED FOR UNKNOWN INDICATION
     Dosage: 20 UNK, UNK
     Route: 048
     Dates: start: 20150731
  25. CEFTRIAXONE. [Concomitant]
     Active Substance: CEFTRIAXONE
     Indication: PRODUCT USED FOR UNKNOWN INDICATION
     Route: 065
     Dates: start: 201502, end: 201502

REACTIONS (6)
  - Pulmonary embolism [Fatal]
  - Cardiac failure [Unknown]
  - Enterobacter infection [Unknown]
  - Multi-organ failure [Unknown]
  - Staphylococcal infection [Unknown]
  - Pulmonary infarction [Fatal]

NARRATIVE: CASE EVENT DATE: 20150202
